FAERS Safety Report 7574048-2 (Version None)
Quarter: 2011Q2

REPORT INFORMATION
  Report Type: 
  Country: None (occurrence: None)
  Receive Date: 20110627
  Receipt Date: 20110615
  Transmission Date: 20111010
  Serious: Yes (Other)
  Sender: FDA-Public Use
  Company Number: US-JNJFOC-20110607828

PATIENT
  Age: 62 Year
  Sex: Male
  Weight: 68.04 kg

DRUGS (2)
  1. MULTIPLE VITAMIN [Concomitant]
     Indication: VITAMIN SUPPLEMENTATION
     Route: 065
  2. LISTERINE TOTAL CARE PLUS WHITENING [Suspect]
     Indication: DENTAL CARE
     Dosage: TWO TEASPOONSFUL
     Route: 048
     Dates: start: 20110612, end: 20110615

REACTIONS (6)
  - PAIN [None]
  - THERMAL BURN [None]
  - APPLICATION SITE PAIN [None]
  - SENSORY DISTURBANCE [None]
  - LIP BLISTER [None]
  - OROPHARYNGEAL BLISTERING [None]
